FAERS Safety Report 10961083 (Version 1)
Quarter: 2015Q1

REPORT INFORMATION
  Report Type: Spontaneous
  Country: US (occurrence: None)
  Receive Date: 20150326
  Receipt Date: 20150326
  Transmission Date: 20150721
  Serious: Yes (Hospitalization)
  Sender: FDA-Public Use
  Company Number: None

PATIENT
  Age: 38 Year
  Sex: Female

DRUGS (1)
  1. EFFEXOR [Suspect]
     Active Substance: VENLAFAXINE HYDROCHLORIDE

REACTIONS (20)
  - Abdominal pain upper [None]
  - Palpitations [None]
  - Dehydration [None]
  - Dizziness [None]
  - Fatigue [None]
  - Muscular weakness [None]
  - Influenza [None]
  - Drug withdrawal syndrome [None]
  - Nausea [None]
  - Hyperhidrosis [None]
  - Dyspepsia [None]
  - Tremor [None]
  - Balance disorder [None]
  - Thyroid disorder [None]
  - Chest pain [None]
  - Muscle spasms [None]
  - Angina pectoris [None]
  - Diarrhoea [None]
  - Vomiting [None]
  - Headache [None]

NARRATIVE: CASE EVENT DATE: 20150323
